FAERS Safety Report 7513546-4 (Version None)
Quarter: 2011Q2

REPORT INFORMATION
  Report Type: 
  Country: None (occurrence: None)
  Receive Date: 20110531
  Receipt Date: 20110518
  Transmission Date: 20111010
  Serious: Yes (Hospitalization)
  Sender: FDA-Public Use
  Company Number: AU-BAYER-2011-042625

PATIENT
  Sex: Female

DRUGS (1)
  1. YASMIN [Suspect]
     Indication: CONTRACEPTION
     Dosage: UNK
     Route: 048
     Dates: start: 20070709, end: 20070718

REACTIONS (5)
  - DIARRHOEA [None]
  - VAGINAL HAEMORRHAGE [None]
  - CHILLS [None]
  - ABDOMINAL PAIN UPPER [None]
  - VOMITING [None]
